FAERS Safety Report 8470633-4 (Version None)
Quarter: 2012Q2

REPORT INFORMATION
  Report Type: 
  Country: None (occurrence: None)
  Receive Date: 20120627
  Receipt Date: 20120620
  Transmission Date: 20120825
  Serious: No
  Sender: FDA-Public Use
  Company Number: US-BAYER-2012-061328

PATIENT
  Sex: Female

DRUGS (1)
  1. MIRENA [Suspect]
     Dosage: '20 MCG/24HR, CONT
     Route: 015
     Dates: start: 20110111, end: 20120425

REACTIONS (4)
  - ALOPECIA [None]
  - INSOMNIA [None]
  - ANXIETY [None]
  - DEPRESSION [None]
